FAERS Safety Report 4677050-3 (Version None)
Quarter: 2005Q2

REPORT INFORMATION
  Report Type: 
  Country: None (occurrence: None)
  Receive Date: 20050525
  Receipt Date: 20050211
  Transmission Date: 20051028
  Serious: No
  Sender: FDA-Public Use
  Company Number: SU-2005-003128

PATIENT
  Age: 71 Year
  Sex: Female
  Weight: 43.5453 kg

DRUGS (4)
  1. BENICAR [Suspect]
     Indication: HYPERTENSION
     Dosage: 20 MG QD PO
     Route: 048
     Dates: start: 20040601
  2. NEXIUM [Concomitant]
  3. AMBIEN [Concomitant]
  4. APAP TAB [Concomitant]

REACTIONS (2)
  - MITRAL VALVE PROLAPSE [None]
  - NASAL CONGESTION [None]
